FAERS Safety Report 7506523-0 (Version None)
Quarter: 2011Q2

REPORT INFORMATION
  Report Type: 
  Country: None (occurrence: None)
  Receive Date: 20110526
  Receipt Date: 20110518
  Transmission Date: 20111010
  Serious: Yes (Hospitalization, Disabling, Other)
  Sender: FDA-Public Use
  Company Number: US-MERCK-1102USA00334

PATIENT
  Age: 56 Year
  Sex: Female
  Weight: 88 kg

DRUGS (8)
  1. FOSAMAX [Suspect]
     Indication: OSTEOPENIA
     Route: 048
     Dates: start: 20001120, end: 20020101
  2. ALENDRONATE SODIUM [Suspect]
     Indication: OSTEOPENIA
     Route: 048
     Dates: start: 20080301, end: 20100401
  3. CALCIUM (UNSPECIFIED) AND VITAMIN D (UNSPECIFIED) [Concomitant]
     Route: 065
     Dates: start: 19950101
  4. ALLEGRA [Concomitant]
     Indication: SEASONAL ALLERGY
     Route: 065
  5. CLARITIN [Concomitant]
     Indication: SEASONAL ALLERGY
     Route: 048
  6. FOSAMAX [Suspect]
     Route: 048
     Dates: start: 20020101, end: 20080301
  7. VITAMINS (UNSPECIFIED) [Concomitant]
     Route: 065
     Dates: start: 19950101
  8. ZYRTEC [Concomitant]
     Indication: SEASONAL ALLERGY
     Route: 065

REACTIONS (13)
  - STAPHYLOCOCCAL INFECTION [None]
  - TOOTH DISORDER [None]
  - FEMUR FRACTURE [None]
  - FRACTURE NONUNION [None]
  - STRESS FRACTURE [None]
  - ARTHRALGIA [None]
  - BURSITIS [None]
  - MYALGIA [None]
  - ANKLE FRACTURE [None]
  - LOW TURNOVER OSTEOPATHY [None]
  - SUPRAVENTRICULAR TACHYCARDIA [None]
  - OSTEOPOROSIS [None]
  - IMPAIRED HEALING [None]
